FAERS Safety Report 25812133 (Version 1)
Quarter: 2025Q3

REPORT INFORMATION
  Report Type: Spontaneous
  Country: US (occurrence: None)
  Receive Date: 20250917
  Receipt Date: 20250917
  Transmission Date: 20251021
  Serious: Yes (Hospitalization)
  Sender: FDA-CTU
  Company Number: None

PATIENT
  Age: 82 Year
  Sex: Female
  Weight: 54 kg

DRUGS (1)
  1. OLAPARIB [Suspect]
     Active Substance: OLAPARIB

REACTIONS (6)
  - Micturition urgency [None]
  - Asthenia [None]
  - Abdominal discomfort [None]
  - Hyponatraemia [None]
  - Blood urea increased [None]
  - Urine output decreased [None]

NARRATIVE: CASE EVENT DATE: 20250906
